FAERS Safety Report 18350488 (Version 2)
Quarter: 2020Q4

REPORT INFORMATION
  Report Type: Report from Study
  Country: CA (occurrence: CA)
  Receive Date: 20201006
  Receipt Date: 20201120
  Transmission Date: 20210114
  Serious: Yes (Other)
  Sender: FDA-Public Use
  Company Number: CA-JNJFOC-20200952102

PATIENT
  Age: 44 Year
  Sex: Male
  Weight: 125 kg

DRUGS (1)
  1. SIMPONI [Suspect]
     Active Substance: GOLIMUMAB
     Indication: RHEUMATOID ARTHRITIS
     Dosage: STRENGTH = 250 MG
     Route: 042
     Dates: start: 20190611

REACTIONS (1)
  - Bone neoplasm [Unknown]

NARRATIVE: CASE EVENT DATE: 20200926
